FAERS Safety Report 10468164 (Version 1)
Quarter: 2014Q3

REPORT INFORMATION
  Report Type: Report from Study
  Country: IT (occurrence: IT)
  Receive Date: 20140922
  Receipt Date: 20140922
  Transmission Date: 20150326
  Serious: Yes (Death)
  Sender: FDA-Public Use
  Company Number: IT-BAXTER-2014BAX056563

PATIENT

DRUGS (5)
  1. ENDOXAN BAXTER [Suspect]
     Active Substance: CYCLOPHOSPHAMIDE
     Indication: PLASMA CELL MYELOMA
     Dosage: ON DAYS 1, 8, AND 15, EVERY 28 DAYS
     Route: 048
  2. CARFILZOMIB [Suspect]
     Active Substance: CARFILZOMIB
     Indication: PLASMA CELL MYELOMA
     Dosage: OVER 30 MINUTES ON DAYS 1, 2, 8, 9, 15 AND 16
     Route: 042
  3. DEXAMETHASONE. [Suspect]
     Active Substance: DEXAMETHASONE
     Indication: PLASMA CELL MYELOMA
     Dosage: ON DAYS 1, 8, 15, AND 22, EVERY 28 DAYS
     Route: 048
  4. CARFILZOMIB [Suspect]
     Active Substance: CARFILZOMIB
     Dosage: THEREAFTER, EVERY 28 DAYS
     Route: 042
  5. CARFILZOMIB [Suspect]
     Active Substance: CARFILZOMIB
     Dosage: ON DAYS 1, 2, 15 AND 16, EVERY 28 DAYS UNTIL PROGRESSION OR INTOLERANCE
     Route: 042

REACTIONS (1)
  - Disease progression [Fatal]
